FAERS Safety Report 7771280-X (Version None)
Quarter: 2011Q3

REPORT INFORMATION
  Report Type: 
  Country: None (occurrence: None)
  Receive Date: 20110922
  Receipt Date: 20110919
  Transmission Date: 20111222
  Serious: Yes (Other)
  Sender: FDA-Public Use
  Company Number: CA-PFIZER INC-2011222633

PATIENT
  Age: 86 Year
  Sex: Male
  Weight: 77 kg

DRUGS (3)
  1. LIPITOR [Suspect]
     Indication: PROPHYLAXIS
  2. ASPIRIN [Concomitant]
     Indication: PROPHYLAXIS
     Dosage: UNK
  3. LIPITOR [Suspect]
     Indication: BLOOD CHOLESTEROL
     Dosage: 20 MG DAILY
     Route: 048
     Dates: start: 20060101

REACTIONS (4)
  - ARTHRALGIA [None]
  - ABDOMINAL DISTENSION [None]
  - AMNESIA [None]
  - DYSPEPSIA [None]
